FAERS Safety Report 10300803 (Version 3)
Quarter: 2014Q3

REPORT INFORMATION
  Report Type: Report from Study
  Country: US (occurrence: US)
  Receive Date: 20140714
  Receipt Date: 20140812
  Transmission Date: 20150326
  Serious: Yes (Death, Life-Threatening, Hospitalization)
  Sender: FDA-Public Use
  Company Number: US-BIOGENIDEC-2014BI062608

PATIENT
  Age: 48 Year
  Sex: Female

DRUGS (3)
  1. TECFIDERA [Suspect]
     Active Substance: DIMETHYL FUMARATE
     Indication: RELAPSING-REMITTING MULTIPLE SCLEROSIS
     Route: 048
     Dates: start: 20140613, end: 20140622
  2. AVONEX [Concomitant]
     Active Substance: INTERFERON BETA-1A
     Indication: MULTIPLE SCLEROSIS
     Route: 030
     Dates: start: 20130419
  3. TECFIDERA [Suspect]
     Active Substance: DIMETHYL FUMARATE
     Indication: RELAPSING-REMITTING MULTIPLE SCLEROSIS
     Route: 048
     Dates: start: 20140606, end: 20140612

REACTIONS (19)
  - Brain oedema [Fatal]
  - Diarrhoea [Unknown]
  - Aphasia [Unknown]
  - Decreased appetite [Unknown]
  - Headache [Unknown]
  - General symptom [Unknown]
  - Encephalopathy [Unknown]
  - Dehydration [Unknown]
  - Convulsion [Unknown]
  - Lethargy [Unknown]
  - Fatigue [Unknown]
  - Intracranial pressure increased [Unknown]
  - Haemorrhagic transformation stroke [Unknown]
  - Cerebral venous thrombosis [Unknown]
  - Vomiting [Unknown]
  - Flushing [Unknown]
  - Abdominal pain [Unknown]
  - Nausea [Unknown]
  - Asthenia [Unknown]

NARRATIVE: CASE EVENT DATE: 2014
